FAERS Safety Report 24239286 (Version 1)
Quarter: 2024Q3

REPORT INFORMATION
  Report Type: Spontaneous
  Country: GB (occurrence: GB)
  Receive Date: 20240822
  Receipt Date: 20240822
  Transmission Date: 20241016
  Serious: Yes (Other)
  Sender: TEVA
  Company Number: GB-MHRA-TPP23555454C20296253YC1723481064791

PATIENT
  Age: 67 Year
  Sex: Female
  Weight: 68 kg

DRUGS (11)
  1. TRAMADOL [Suspect]
     Active Substance: TRAMADOL\TRAMADOL HYDROCHLORIDE
     Indication: Ill-defined disorder
     Dosage: DOSE FORM REPORTED: TPP YC - PLEASE RECLASSIFY
     Route: 065
     Dates: start: 20240807
  2. CARBOCYSTEINE [Concomitant]
     Active Substance: CARBOCYSTEINE
     Indication: Ill-defined disorder
     Dosage: TIME INTERVAL: 0.33333333 DAYS: DOSE FORM REPORTED: TPP YC - PLEASE RECLASSIFY
     Dates: start: 20231201
  3. FLUCONAZOLE [Concomitant]
     Active Substance: FLUCONAZOLE
     Indication: Ill-defined disorder
     Dosage: TAKE ONE AS DIRECTED, DOSE FORM REPORTED: TPP YC - PLEASE RECLASSIFY
     Dates: start: 20240520, end: 20240520
  4. CITALOPRAM [Concomitant]
     Active Substance: CITALOPRAM\CITALOPRAM HYDROBROMIDE
     Indication: Ill-defined disorder
     Dosage: DOSE FORM REPORTED: TPP YC - PLEASE RECLASSIFY
     Dates: start: 20231201
  5. CODEINE PHOSPHATE [Concomitant]
     Active Substance: CODEINE PHOSPHATE
     Indication: Ill-defined disorder
     Dosage: DOSE FORM REPORTED: TPP YC - PLEASE RECLASSIFY
     Dates: start: 20240720, end: 20240804
  6. ALBUTEROL [Concomitant]
     Active Substance: ALBUTEROL
     Indication: Ill-defined disorder
     Dosage: TIME INTERVAL: AS NECESSARY: DOSE FORM REPORTED: TPP YC - PLEASE RECLASSIFY
     Route: 055
     Dates: start: 20231201
  7. NYSTATIN [Concomitant]
     Active Substance: NYSTATIN
     Indication: Ill-defined disorder
     Dosage: 1ML TO BE RINSED AROUND THE MOUTH AND THEN SWAL..., DOSE FORM REPORTED: TPP YC - PLEASE RECLASSIFY
     Dates: start: 20240520, end: 20240603
  8. VAGIRUX [Concomitant]
     Indication: Ill-defined disorder
     Dosage: ONE TO BE INSERTED INTO THE VAGINA DAILY FOR TH..., DOSE FORM REPORTED: TPP YC - PLEASE RECLASSIFY
     Route: 067
     Dates: start: 20240627
  9. MICONAZOLE [Concomitant]
     Active Substance: MICONAZOLE\MICONAZOLE NITRATE
     Indication: Ill-defined disorder
     Dosage: PLACE 2.5ML IN THE MOUTH FOUR TIMES DAILY FOR 1..., DOSE FORM REPORTED: TPP YC - PLEASE RECLASSIFY
     Dates: start: 20240520, end: 20240603
  10. EZETIMIBE [Concomitant]
     Active Substance: EZETIMIBE
     Indication: Ill-defined disorder
     Dosage: DOSE FORM REPORTED: TPP YC - PLEASE RECLASSIFY
     Dates: start: 20231201
  11. BECLOMETHASONE DIPROPIONATE\FORMOTEROL FUMARATE\GLYCOPYRROLATE [Concomitant]
     Active Substance: BECLOMETHASONE DIPROPIONATE\FORMOTEROL FUMARATE\GLYCOPYRROLATE
     Indication: Ill-defined disorder
     Dosage: PUFFS, DOSE FORM REPORTED: TPP YC - PLEASE RECLASSIFY
     Route: 055
     Dates: start: 20231201

REACTIONS (2)
  - Chest pain [Recovered/Resolved]
  - Muscular weakness [Unknown]

NARRATIVE: CASE EVENT DATE: 20240807
